FAERS Safety Report 11102181 (Version 1)
Quarter: 2015Q2

REPORT INFORMATION
  Report Type: Spontaneous
  Country: BR (occurrence: BR)
  Receive Date: 20150511
  Receipt Date: 20150511
  Transmission Date: 20150821
  Serious: Yes (Hospitalization, Other)
  Sender: FDA-Public Use
  Company Number: BR-ROCHE-1574101

PATIENT
  Age: 74 Year
  Sex: Female

DRUGS (4)
  1. MODURETIC 5-50 [Concomitant]
     Active Substance: AMILORIDE HYDROCHLORIDE\HYDROCHLOROTHIAZIDE
     Route: 065
  2. RIVOTRIL [Suspect]
     Active Substance: CLONAZEPAM
     Route: 048
     Dates: start: 201504
  3. PROPRANOLOL [Concomitant]
     Active Substance: PROPRANOLOL\PROPRANOLOL HYDROCHLORIDE
     Route: 065
  4. RIVOTRIL [Suspect]
     Active Substance: CLONAZEPAM
     Indication: PRODUCT USED FOR UNKNOWN INDICATION
     Route: 048
     Dates: start: 1995, end: 201504

REACTIONS (9)
  - Pain in extremity [Not Recovered/Not Resolved]
  - Nausea [Unknown]
  - Product taste abnormal [Unknown]
  - Breast disorder [Unknown]
  - Throat tightness [Not Recovered/Not Resolved]
  - Colitis [Unknown]
  - Scoliosis [Not Recovered/Not Resolved]
  - Peripheral swelling [Unknown]
  - Gastritis [Unknown]

NARRATIVE: CASE EVENT DATE: 201503
